FAERS Safety Report 21394260 (Version 1)
Quarter: 2022Q3

REPORT INFORMATION
  Report Type: Spontaneous
  Country: DE (occurrence: DE)
  Receive Date: 20220930
  Receipt Date: 20220930
  Transmission Date: 20221026
  Serious: Yes (Hospitalization)
  Sender: FDA-Public Use
  Company Number: DE-ADRED-07412-02

PATIENT
  Age: 83 Year
  Sex: Male
  Weight: 68 kg

DRUGS (12)
  1. CLOPIDOGREL [Suspect]
     Active Substance: CLOPIDOGREL BISULFATE
     Indication: Product used for unknown indication
     Dosage: 1 DOSAGE FORMS DAILY; 75 MG, 0-1-0-0, UNIT DOSE : 1 DF , FREQUENCY : OD
  2. RIVAROXABAN [Suspect]
     Active Substance: RIVAROXABAN
     Indication: Product used for unknown indication
     Dosage: 1 DOSAGE FORMS DAILY; 15 MG, 1-0-0-0, UNIT DOSE : 1 DF , FREQUENCY : OD
  3. NITRENDIPINE [Concomitant]
     Active Substance: NITRENDIPINE
     Indication: Product used for unknown indication
     Dosage: 2 DOSAGE FORMS DAILY; 20 MG, 1-0-1-0, UNIT DOSE : 1 DF , FREQUENCY : BD
  4. TROSPIUM [Concomitant]
     Active Substance: TROSPIUM
     Indication: Product used for unknown indication
     Dosage: 1 DOSAGE FORMS DAILY; 30 MG, 1-0-0-0, UNIT DOSE : 1 DF , FREQUENCY : OD
  5. BISOPROLOL [Concomitant]
     Active Substance: BISOPROLOL
     Indication: Product used for unknown indication
     Dosage: 2 DOSAGE FORMS DAILY; 2.5 MG, 1-0-1-0, UNIT DOSE : 1 DF , FREQUENCY : BD
  6. URAPIDIL [Concomitant]
     Active Substance: URAPIDIL
     Indication: Product used for unknown indication
     Dosage: 3 DOSAGE FORMS DAILY; 60 MG, 1-0-1-1, UNIT DOSE : 1 DF , FREQUENCY : 3 TIMES A DAY
  7. CANDESARTAN [Concomitant]
     Active Substance: CANDESARTAN
     Indication: Product used for unknown indication
     Dosage: 2 DOSAGE FORMS DAILY; 16 MG, 1-0-1-0, UNIT DOSE : 1 DF , FREQUENCY : BD
  8. ATORVASTATIN [Concomitant]
     Active Substance: ATORVASTATIN
     Indication: Product used for unknown indication
     Dosage: 1 DOSAGE FORMS DAILY; 40 MG, 0-0-1-0, UNIT DOSE : 1 DF , FREQUENCY : OD
  9. TORSEMIDE [Concomitant]
     Active Substance: TORSEMIDE
     Indication: Product used for unknown indication
     Dosage: 1 DOSAGE FORMS DAILY; 10 MG, 1-0-0-0, UNIT DOSE : 1 DF , FREQUENCY : OD
  10. EPLERENONE [Concomitant]
     Active Substance: EPLERENONE
     Indication: Product used for unknown indication
     Dosage: 1 DOSAGE FORMS DAILY; 50 MG, 1-0-0-0, UNIT DOSE : 1 DF , FREQUENCY : OD
  11. GABAPENTIN [Concomitant]
     Active Substance: GABAPENTIN
     Indication: Product used for unknown indication
     Dosage: 3 DOSAGE FORMS DAILY; 300 MG, 1-1-1-0, UNIT DOSE : 1 DF , FREQUENCY : 3 TIMES A DAY
  12. PANTOPRAZOLE [Concomitant]
     Active Substance: PANTOPRAZOLE
     Indication: Product used for unknown indication
     Dosage: 1 DOSAGE FORMS DAILY; 40 MG, 1-0-0-0, UNIT DOSE : 1 DF , FREQUENCY : OD

REACTIONS (2)
  - Urogenital haemorrhage [Unknown]
  - Anaemia [Unknown]

NARRATIVE: CASE EVENT DATE: 20210926
